FAERS Safety Report 13058879 (Version 1)
Quarter: 2016Q4

REPORT INFORMATION
  Report Type: Spontaneous
  Country: US (occurrence: US)
  Receive Date: 20161223
  Receipt Date: 20161223
  Transmission Date: 20170207
  Serious: No
  Sender: FDA-Public Use
  Company Number: US-BAUSCH-BL-2016-011293

PATIENT
  Sex: Male

DRUGS (1)
  1. XENAZINE [Suspect]
     Active Substance: TETRABENAZINE
     Indication: HUNTINGTON^S DISEASE
     Dosage: 2 TABLETS IN AM AND 1 TABLET AT LUNCH AND 2 TABLETS AT BEDTIME
     Route: 048
     Dates: start: 201507

REACTIONS (2)
  - Toothache [Unknown]
  - Dyskinesia [Unknown]
